FAERS Safety Report 5579077-6 (Version None)
Quarter: 2008Q1

REPORT INFORMATION
  Report Type: 
  Country: None (occurrence: None)
  Receive Date: 20080102
  Receipt Date: 20071217
  Transmission Date: 20080703
  Serious: No
  Sender: FDA-Public Use
  Company Number: DE-ASTRAZENECA-2007PK02665

PATIENT
  Sex: Female

DRUGS (3)
  1. SEROQUEL [Suspect]
     Dates: start: 20071008, end: 20071102
  2. FLUOXETINE [Concomitant]
  3. VALPROATE SODIUM [Concomitant]

REACTIONS (1)
  - LEUKOPENIA [None]
